FAERS Safety Report 7752391-1 (Version None)
Quarter: 2011Q3

REPORT INFORMATION
  Report Type: 
  Country: None (occurrence: None)
  Receive Date: 20110915
  Receipt Date: 20110908
  Transmission Date: 20111222
  Serious: Yes (Other)
  Sender: FDA-Public Use
  Company Number: PHHY2011AR79944

PATIENT

DRUGS (1)
  1. ZOLEDRONOC ACID [Suspect]
     Dosage: 5 MG, 1 AMPOULE
     Route: 042
     Dates: start: 20100727

REACTIONS (3)
  - EYE INFECTION TOXOPLASMAL [None]
  - INTRAOCULAR PRESSURE INCREASED [None]
  - HUMERUS FRACTURE [None]
